FAERS Safety Report 14196566 (Version 1)
Quarter: 2017Q4

REPORT INFORMATION
  Report Type: Spontaneous
  Country: FR (occurrence: FR)
  Receive Date: 20171116
  Receipt Date: 20171116
  Transmission Date: 20180321
  Serious: Yes (Disabling, Other)
  Sender: FDA-Public Use
  Company Number: FR-MERCK KGAA-2034382

PATIENT
  Age: 72 Year
  Sex: Female

DRUGS (1)
  1. NOVOTHYROX [Suspect]
     Active Substance: LEVOTHYROXINE SODIUM
     Indication: POST PROCEDURAL HYPOTHYROIDISM

REACTIONS (6)
  - Bedridden [Unknown]
  - Fatigue [Unknown]
  - Herpes zoster [Unknown]
  - Muscle spasms [Unknown]
  - Migraine [Unknown]
  - Alopecia [Unknown]

NARRATIVE: CASE EVENT DATE: 20170805
